FAERS Safety Report 4616112-3 (Version None)
Quarter: 2005Q1

REPORT INFORMATION
  Report Type: 
  Country: None (occurrence: None)
  Receive Date: 20050323
  Receipt Date: 20050317
  Transmission Date: 20050727
  Serious: Yes (Other)
  Sender: FDA-Public Use
  Company Number: PHEH2005US03245

PATIENT
  Age: 59 Year
  Sex: Male

DRUGS (2)
  1. XANAX [Concomitant]
     Indication: ANXIETY
     Dosage: 0.25 MG, UNK
  2. ELIDEL [Suspect]
     Dosage: UNK, QD
     Route: 061
     Dates: start: 20020101, end: 20020101

REACTIONS (3)
  - MASS [None]
  - SQUAMOUS CELL CARCINOMA [None]
  - SURGERY [None]
